FAERS Safety Report 6192220-3 (Version None)
Quarter: 2009Q2

REPORT INFORMATION
  Report Type: 
  Country: None (occurrence: None)
  Receive Date: 20090515
  Receipt Date: 20090427
  Transmission Date: 20091009
  Serious: Yes (Death, Other)
  Sender: FDA-Public Use
  Company Number: US-GENENTECH-282946

PATIENT

DRUGS (4)
  1. ACTIVASE [Suspect]
     Indication: INTRAVENTRICULAR HAEMORRHAGE
     Dosage: 0.6 MG, QD
  2. ACTIVASE [Suspect]
     Dosage: 2 MG, QD
  3. ACTIVASE [Suspect]
     Dosage: 3 MG, QD
  4. ACTIVASE [Suspect]
     Dosage: 1 MG, Q8H

REACTIONS (4)
  - BACTERIAL INFECTION [None]
  - CNS VENTRICULITIS [None]
  - DEATH [None]
  - INTRAVENTRICULAR HAEMORRHAGE [None]
